FAERS Safety Report 5508809-8 (Version None)
Quarter: 2007Q4

REPORT INFORMATION
  Report Type: 
  Country: None (occurrence: None)
  Receive Date: 20071105
  Receipt Date: 20071105
  Transmission Date: 20080405
  Serious: Yes (Other)
  Sender: FDA-Public Use
  Company Number: None

PATIENT
  Age: 46 Year
  Sex: Female

DRUGS (1)
  1. TB TINE [Suspect]
     Dates: start: 20070223

REACTIONS (3)
  - MUSCLE ABSCESS [None]
  - SKIN HAEMORRHAGE [None]
  - SKIN INFECTION [None]
